FAERS Safety Report 8918307 (Version 1)
Quarter: 2012Q4

REPORT INFORMATION
  Report Type: 
  Country: US (occurrence: US)
  Receive Date: 20121120
  Receipt Date: 20121120
  Transmission Date: 20130627
  Serious: No
  Sender: FDA-Public Use
  Company Number: US-ASTRAZENECA-2012SE25780

PATIENT
  Age: 63 Year
  Sex: Female

DRUGS (5)
  1. NEXIUM [Suspect]
     Indication: GASTROOESOPHAGEAL REFLUX DISEASE
     Route: 048
  2. BLOOD PRESSURE MEDICATION [Concomitant]
  3. ACTANEL [Concomitant]
     Indication: BONE DENSITY DECREASED
  4. DICYCLOMINE [Concomitant]
     Indication: GASTROINTESTINAL PAIN
  5. ESTRATEST [Concomitant]

REACTIONS (2)
  - Systemic lupus erythematosus [Unknown]
  - Hypothyroidism [Unknown]
